FAERS Safety Report 8531163-4 (Version None)
Quarter: 2012Q3

REPORT INFORMATION
  Report Type: 
  Country: None (occurrence: None)
  Receive Date: 20120723
  Receipt Date: 20120718
  Transmission Date: 20120928
  Serious: Yes (Death, Hospitalization)
  Sender: FDA-Public Use
  Company Number: DE-ABBOTT-12P-062-0952656-00

PATIENT
  Sex: Male
  Weight: 60 kg

DRUGS (10)
  1. HUMIRA [Suspect]
     Route: 058
     Dates: start: 20120101
  2. RAMIPRIL [Concomitant]
     Indication: HYPERTENSION
  3. METHOTREXATE [Concomitant]
     Indication: PRODUCT USED FOR UNKNOWN INDICATION
     Dates: start: 20090101
  4. CALCICARE [Concomitant]
     Indication: PRODUCT USED FOR UNKNOWN INDICATION
     Route: 048
     Dates: start: 20100501
  5. PREDNISOLONE [Concomitant]
     Indication: POLYARTHRITIS
     Route: 048
  6. FOLSAN [Concomitant]
     Indication: PRODUCT USED FOR UNKNOWN INDICATION
     Route: 048
     Dates: start: 20120201
  7. HUMIRA [Suspect]
     Indication: RHEUMATOID ARTHRITIS
     Route: 058
     Dates: start: 20101101, end: 20111101
  8. CORTISONE ACETATE [Concomitant]
     Indication: PRODUCT USED FOR UNKNOWN INDICATION
     Dates: start: 20090101
  9. ARAVA [Concomitant]
     Indication: RHEUMATOID ARTHRITIS
     Dosage: 10 MG DAILY
     Route: 048
     Dates: start: 20100517, end: 20120101
  10. CELEBREX [Concomitant]
     Indication: PAIN
     Route: 048
     Dates: start: 20120501

REACTIONS (8)
  - CEREBRAL VENTRICLE DILATATION [None]
  - PLEURAL DECORTICATION [None]
  - STAPHYLOCOCCAL INFECTION [None]
  - PLEURISY [None]
  - DIZZINESS [None]
  - NAUSEA [None]
  - SYNCOPE [None]
  - ENCEPHALITIS [None]
